FAERS Safety Report 6447577-2 (Version None)
Quarter: 2009Q4

REPORT INFORMATION
  Report Type: 
  Country: None (occurrence: None)
  Receive Date: 20091119
  Receipt Date: 20081120
  Transmission Date: 20100525
  Serious: Yes (Hospitalization)
  Sender: FDA-Public Use
  Company Number: US-AMGEN-KDL317928

PATIENT
  Sex: Female

DRUGS (5)
  1. ENBREL [Suspect]
     Indication: PSORIATIC ARTHROPATHY
     Route: 058
     Dates: start: 20080905
  2. ENBREL [Suspect]
     Indication: PSORIASIS
  3. CYCLOSPORINE [Suspect]
     Route: 048
     Dates: start: 20080605, end: 20081110
  4. CELEXA [Concomitant]
     Route: 048
  5. DOVONEX [Concomitant]
     Route: 061

REACTIONS (4)
  - ANXIETY [None]
  - CELLULITIS STAPHYLOCOCCAL [None]
  - CELLULITIS STREPTOCOCCAL [None]
  - LYMPHADENOPATHY [None]
